FAERS Safety Report 25989520 (Version 1)
Quarter: 2025Q4

REPORT INFORMATION
  Report Type: Spontaneous
  Country: US (occurrence: None)
  Receive Date: 20251031
  Receipt Date: 20251031
  Transmission Date: 20260117
  Serious: Yes (Hospitalization)
  Sender: FDA-CTU
  Company Number: None

PATIENT
  Age: 62 Year
  Sex: Male
  Weight: 65.6 kg

DRUGS (1)
  1. FLEET ENEMA [Suspect]
     Active Substance: SODIUM PHOSPHATE, DIBASIC\SODIUM PHOSPHATE, MONOBASIC
     Dates: start: 20251008, end: 20251010

REACTIONS (4)
  - Blood phosphorus increased [None]
  - Glomerular filtration rate decreased [None]
  - Acute kidney injury [None]
  - Haemodialysis [None]

NARRATIVE: CASE EVENT DATE: 20251010
